FAERS Safety Report 24629496 (Version 2)
Quarter: 2025Q1

REPORT INFORMATION
  Report Type: Spontaneous
  Country: GB (occurrence: GB)
  Receive Date: 20241118
  Receipt Date: 20250120
  Transmission Date: 20250408
  Serious: Yes (Other)
  Sender: AUROBINDO
  Company Number: GB-MHRA-MED-202411052341563230-DPFTM

PATIENT
  Age: 61 Year
  Sex: Female
  Weight: 50 kg

DRUGS (15)
  1. CLARITHROMYCIN [Suspect]
     Active Substance: CLARITHROMYCIN
     Indication: Antibiotic prophylaxis
     Dosage: 500 MILLIGRAM, TWO TIMES A DAY (500MG X 2 A DAY)
     Route: 065
     Dates: start: 20241025, end: 20241027
  2. METHOTREXATE [Concomitant]
     Active Substance: METHOTREXATE
     Indication: Autoimmune disorder
     Route: 065
     Dates: start: 20170201
  3. NIFEDIPINE [Concomitant]
     Active Substance: NIFEDIPINE
     Indication: Raynaud^s phenomenon
     Route: 065
     Dates: start: 20160101
  4. QUININE [Concomitant]
     Active Substance: QUININE
     Indication: Muscle spasms
     Route: 065
     Dates: start: 20200101
  5. ZOLPIDEM [Concomitant]
     Active Substance: ZOLPIDEM TARTRATE
     Indication: Insomnia
     Route: 065
     Dates: start: 20111030
  6. CODEINE [Concomitant]
     Active Substance: CODEINE
     Indication: Arthralgia
     Route: 065
     Dates: start: 20200101
  7. BISACODYL [Concomitant]
     Active Substance: BISACODYL
     Indication: Constipation
     Route: 065
     Dates: start: 20160101
  8. CREON [Concomitant]
     Active Substance: PANCRELIPASE AMYLASE\PANCRELIPASE LIPASE\PANCRELIPASE PROTEASE
     Indication: Lupus pancreatitis
     Route: 065
     Dates: start: 20230101
  9. GALFER FA [Concomitant]
     Indication: Anaemia
     Route: 065
     Dates: start: 20210101
  10. PROMETHAZINE [Concomitant]
     Active Substance: PROMETHAZINE HYDROCHLORIDE
     Indication: Pruritus
     Route: 065
     Dates: start: 20220101
  11. ACETAMINOPHEN [Concomitant]
     Active Substance: ACETAMINOPHEN
     Indication: Pain
     Route: 065
     Dates: start: 20170101
  12. POLYETHYLENE GLYCOLS [Concomitant]
     Active Substance: POLYETHYLENE GLYCOLS
     Indication: Constipation
     Route: 065
     Dates: start: 20230401
  13. FOLIC ACID [Concomitant]
     Active Substance: FOLIC ACID
     Indication: Systemic lupus erythematosus
     Route: 065
     Dates: start: 20170201
  14. VITAMIN D [Concomitant]
     Active Substance: VITAMIN D NOS
     Indication: Systemic lupus erythematosus
     Route: 065
     Dates: start: 20170101
  15. COLLAGEN [Concomitant]
     Active Substance: COLLAGEN
     Indication: Undifferentiated connective tissue disease
     Route: 065
     Dates: start: 20220101

REACTIONS (10)
  - Disorientation [Unknown]
  - Deafness bilateral [Recovered/Resolved with Sequelae]
  - Hallucination [Recovered/Resolved]
  - Insomnia [Recovered/Resolved]
  - Dizziness [Recovered/Resolved]
  - Dysgeusia [Recovered/Resolved]
  - Headache [Recovered/Resolved]
  - Hypertension [Recovered/Resolved]
  - Dysphonia [Recovered/Resolved]
  - Thirst [Unknown]

NARRATIVE: CASE EVENT DATE: 20241025
